FAERS Safety Report 16772831 (Version 1)
Quarter: 2019Q3

REPORT INFORMATION
  Report Type: Spontaneous
  Country: US (occurrence: US)
  Receive Date: 20190715
  Receipt Date: 20190715
  Transmission Date: 20191005
  Serious: No
  Sender: FDA-Public Use
  Company Number: None

PATIENT
  Age: 59 Year
  Sex: Female

DRUGS (1)
  1. BOTOX [Suspect]
     Active Substance: ONABOTULINUMTOXINA
     Dosage: OTHER
     Route: 030
     Dates: start: 201812

REACTIONS (2)
  - Inappropriate schedule of product administration [None]
  - Product storage error [None]

NARRATIVE: CASE EVENT DATE: 20190715
